FAERS Safety Report 8601086-0 (Version None)
Quarter: 2012Q3

REPORT INFORMATION
  Report Type: 
  Country: None (occurrence: None)
  Receive Date: 20120817
  Receipt Date: 20120806
  Transmission Date: 20120928
  Serious: Yes (Hospitalization, Other)
  Sender: FDA-Public Use
  Company Number: PHBS2007BR05575

PATIENT
  Sex: Female
  Weight: 92 kg

DRUGS (13)
  1. DOMPERIDONE [Concomitant]
     Indication: GASTROOESOPHAGEAL REFLUX DISEASE
     Dosage: 1 DF, BID (1 TABLET BEFORE LUNCH AND DINNER, )
     Route: 048
  2. DILTIAZEM [Concomitant]
     Indication: HYPERTENSION
     Dosage: 2 DF, UNK
     Route: 048
  3. PROPYL-THIOURACIL [Concomitant]
     Indication: THYROID DISORDER
     Dosage: 2 DF, UNK
     Route: 048
  4. ZESTRIL [Concomitant]
     Indication: HEART RATE INCREASED
     Dosage: 1 DF, UNK
     Route: 048
  5. DILTIAZEM HCL [Concomitant]
     Indication: HYPERTENSION
     Dosage: 1 DF, BID (1 TABLET EVERY 12 HOURS,
     Route: 048
  6. OMEPRAZOLE [Concomitant]
     Indication: GASTRIC DISORDER
     Dosage: 1 DF, QD (1 TABLET BEFORE COFFEE)
  7. LOSARTAN POTASSIUM [Concomitant]
     Indication: HYPERTENSION
     Dosage: 1 DF, QD (1 TABLET IN THE MORNING)
     Route: 048
  8. LIPITOR [Concomitant]
     Indication: BLOOD CHOLESTEROL
     Dosage: 1 DF, UNK
     Route: 048
  9. TAPAZOL [Concomitant]
     Indication: HYPERTHYROIDISM
     Dosage: 1 DF, QD  (1 TABLET IN MORNING)
     Route: 048
  10. ATORVASTATIN [Concomitant]
     Indication: BLOOD CHOLESTEROL INCREASED
     Dosage: 1 DF, QD
  11. CHLORTHALIDONE [Concomitant]
     Indication: DIURETIC THERAPY
     Dosage: 1 DF, QD (1 TABLET IN THE MORNING)
  12. CLARITHROMYCIN [Concomitant]
     Indication: LUNG OPERATION
     Dosage: 1 DF, (1 TABLET IN ALTERNATE DAYS)
     Route: 048
  13. FORMOTEROL FUMARATE [Suspect]
     Indication: ASTHMA
     Dosage: 1 DF, BID (AT A DOSE OF 1 CAPSULE EACH TREATMENT TWICE A DAY)

REACTIONS (14)
  - DRUG INEFFECTIVE [None]
  - RHINITIS ALLERGIC [None]
  - HYPERTENSION [None]
  - HAEMORRHAGE [None]
  - ANXIETY [None]
  - INSOMNIA [None]
  - GASTROOESOPHAGEAL REFLUX DISEASE [None]
  - DYSPNOEA [None]
  - EXPIRED DRUG ADMINISTERED [None]
  - LUNG NEOPLASM MALIGNANT [None]
  - PNEUMONITIS [None]
  - HEADACHE [None]
  - TREMOR [None]
  - DIZZINESS [None]
